FAERS Safety Report 5599305-0 (Version None)
Quarter: 2008Q1

REPORT INFORMATION
  Report Type: 
  Country: None (occurrence: None)
  Receive Date: 20080117
  Receipt Date: 20080103
  Transmission Date: 20080703
  Serious: Yes (Other)
  Sender: FDA-Public Use
  Company Number: S07-FRA-05814-01

PATIENT
  Age: 42 Year
  Sex: Male

DRUGS (4)
  1. ESCITALOPRAM [Suspect]
     Dosage: 20 MG QD PO
     Route: 048
     Dates: start: 20050102
  2. ABILIFY [Suspect]
     Dosage: 1 TABLET QD PO
     Route: 048
     Dates: start: 20050102
  3. DEPAKOTE [Suspect]
     Dosage: 500 MG BID PO
     Route: 048
     Dates: start: 20050102
  4. XALATAN [Concomitant]

REACTIONS (2)
  - INTRAOCULAR PRESSURE INCREASED [None]
  - VISUAL FIELD DEFECT [None]
